FAERS Safety Report 7257795-1 (Version None)
Quarter: 2011Q1

REPORT INFORMATION
  Report Type: 
  Country: None (occurrence: None)
  Receive Date: 20110129
  Receipt Date: 20100526
  Transmission Date: 20110831
  Serious: No
  Sender: FDA-Public Use
  Company Number: US-ABBOTT-10P-163-0647178-00

PATIENT
  Age: 24 Year
  Sex: Female

DRUGS (5)
  1. HUMIRA [Suspect]
     Indication: CROHN'S DISEASE
     Dosage: 1ST WEEK
     Dates: start: 20100324
  2. HUMIRA [Suspect]
  3. HUMIRA [Suspect]
     Dosage: 3RD WEEK
  4. LIALDA [Concomitant]
     Indication: CROHN'S DISEASE
     Dosage: 2 TABS, ONCE PER DAY
     Route: 048
  5. ACTIMIL [Concomitant]
     Indication: PRODUCT USED FOR UNKNOWN INDICATION
     Dosage: DAILY

REACTIONS (2)
  - SKIN SWELLING [None]
  - RASH MACULAR [None]
